FAERS Safety Report 7320884-7 (Version None)
Quarter: 2011Q1

REPORT INFORMATION
  Report Type: 
  Country: None (occurrence: None)
  Receive Date: 20110228
  Receipt Date: 20110215
  Transmission Date: 20110831
  Serious: Yes (Hospitalization)
  Sender: FDA-Public Use
  Company Number: US-MERCK-1012USA01153

PATIENT
  Age: 63 Year
  Sex: Female

DRUGS (2)
  1. FOSAMAX [Suspect]
     Indication: OSTEOPOROSIS
     Route: 048
     Dates: start: 20030220, end: 20060115
  2. BONIVA [Suspect]
     Indication: OSTEOPOROSIS
     Route: 065
     Dates: start: 20060612, end: 20081003

REACTIONS (18)
  - LOW TURNOVER OSTEOPATHY [None]
  - DEPRESSION [None]
  - OSTEOMALACIA [None]
  - TYPE 2 DIABETES MELLITUS [None]
  - FEMUR FRACTURE [None]
  - DEEP VEIN THROMBOSIS [None]
  - LYME DISEASE [None]
  - INTERVERTEBRAL DISC PROTRUSION [None]
  - SPINAL DISORDER [None]
  - FRACTURE DELAYED UNION [None]
  - ANXIETY [None]
  - DERMATITIS CONTACT [None]
  - FLUSHING [None]
  - ANAEMIA [None]
  - FRACTURE NONUNION [None]
  - IMPAIRED HEALING [None]
  - STRESS FRACTURE [None]
  - HYPOTHYROIDISM [None]
